FAERS Safety Report 13844678 (Version 1)
Quarter: 2017Q3

REPORT INFORMATION
  Report Type: Spontaneous
  Country: FR (occurrence: FR)
  Receive Date: 20170808
  Receipt Date: 20170808
  Transmission Date: 20171127
  Serious: Yes (Hospitalization)
  Sender: FDA-Public Use
  Company Number: FR-ABBVIE-17K-056-2061911-00

PATIENT
  Age: 44 Year
  Sex: Female

DRUGS (2)
  1. HUMIRA [Suspect]
     Active Substance: ADALIMUMAB
     Indication: ANKYLOSING SPONDYLITIS
     Route: 058
     Dates: start: 200711, end: 20170306
  2. CORTANCYL [Concomitant]
     Active Substance: PREDNISONE
     Indication: ANKYLOSING SPONDYLITIS
     Dates: start: 201706

REACTIONS (7)
  - Raynaud^s phenomenon [Not Recovered/Not Resolved]
  - Ovarian cyst [Unknown]
  - Systemic lupus erythematosus [Not Recovered/Not Resolved]
  - Middle insomnia [Unknown]
  - Scleroderma [Not Recovered/Not Resolved]
  - Osteoarthritis [Unknown]
  - Arrhythmia [Unknown]

NARRATIVE: CASE EVENT DATE: 2012
